FAERS Safety Report 18756354 (Version 1)
Quarter: 2021Q1

REPORT INFORMATION
  Report Type: Spontaneous
  Country: PR (occurrence: PR)
  Receive Date: 20210118
  Receipt Date: 20210118
  Transmission Date: 20210419
  Serious: Yes (Life-Threatening, Other)
  Sender: FDA-Public Use
  Company Number: None

PATIENT
  Age: 53 Year
  Sex: Female

DRUGS (1)
  1. DUPIXENT [Suspect]
     Active Substance: DUPILUMAB
     Indication: DERMATITIS ATOPIC
     Dosage: ?          OTHER FREQUENCY:EVERY 2 WEEKS;?
     Route: 058
     Dates: start: 20201111

REACTIONS (6)
  - Vomiting [None]
  - Dizziness [None]
  - Injection site pruritus [None]
  - Headache [None]
  - Blood pressure fluctuation [None]
  - Rash [None]

NARRATIVE: CASE EVENT DATE: 20210115
